APPROVED DRUG PRODUCT: SEVELAMER CARBONATE
Active Ingredient: SEVELAMER CARBONATE
Strength: 2.4GM/PACKET
Dosage Form/Route: FOR SUSPENSION;ORAL
Application: A201513 | Product #002
Applicant: LUPIN LTD
Approved: Dec 23, 2021 | RLD: No | RS: No | Type: DISCN